FAERS Safety Report 7563688-2 (Version None)
Quarter: 2011Q2

REPORT INFORMATION
  Report Type: 
  Country: None (occurrence: None)
  Receive Date: 20110622
  Receipt Date: 20110615
  Transmission Date: 20111010
  Serious: Yes (Other)
  Sender: FDA-Public Use
  Company Number: US-ABBOTT-11P-163-0732795-00

PATIENT
  Age: 62 Year
  Sex: Female

DRUGS (20)
  1. MIGRANAL [Concomitant]
     Indication: MIGRAINE
  2. XYZAL [Concomitant]
     Indication: PRURITUS
  3. HYDROCODONE [Concomitant]
     Indication: BACK PAIN
  4. TOPAMAX [Concomitant]
     Indication: MUSCLE SPASMS
  5. NEXIUM [Concomitant]
     Indication: ULCER
  6. NEXIUM [Concomitant]
     Indication: PROPHYLAXIS
  7. LYRICA [Concomitant]
     Indication: FIBROMYALGIA
  8. HUMIRA [Suspect]
     Route: 058
     Dates: start: 20050101
  9. MOBIC [Concomitant]
     Indication: BONE PAIN
  10. HYDROCODONE [Concomitant]
     Indication: HEADACHE
  11. HYDROCODONE [Concomitant]
     Indication: ABDOMINAL PAIN
  12. FOLIC ACID [Concomitant]
     Indication: PRODUCT USED FOR UNKNOWN INDICATION
  13. BONIVA [Concomitant]
     Indication: OSTEOPOROSIS
  14. LIDODERM [Concomitant]
     Indication: BACK PAIN
     Dosage: PATCH
  15. HUMIRA [Suspect]
     Indication: CROHN'S DISEASE
     Route: 058
     Dates: start: 20020101, end: 20050101
  16. HUMIRA [Suspect]
     Indication: CROHN'S DISEASE
     Route: 058
  17. PROMETHAZINE [Concomitant]
     Indication: NAUSEA
  18. ALPRAZOLAM [Concomitant]
     Indication: INSOMNIA
     Dosage: AT BEDTIME
  19. SOMA COMPOUND [Concomitant]
     Indication: MUSCLE RELAXANT THERAPY
     Dosage: 1 - 3 TIMES A DAY
  20. AMITRIPTYLINE HCL [Concomitant]
     Indication: INSOMNIA

REACTIONS (17)
  - SCAR [None]
  - RETINAL TEAR [None]
  - GASTROINTESTINAL PAIN [None]
  - VITREOUS FLOATERS [None]
  - ABDOMINAL DISTENSION [None]
  - NEUROMA [None]
  - CATARACT [None]
  - DIARRHOEA [None]
  - MUSCLE SPASMS [None]
  - CROHN'S DISEASE [None]
  - VISUAL IMPAIRMENT [None]
  - APHAGIA [None]
  - DYSURIA [None]
  - SKIN CANCER [None]
  - ORAL HERPES [None]
  - BENIGN NEOPLASM OF BLADDER [None]
  - MOUTH ULCERATION [None]
